FAERS Safety Report 8197287-9 (Version None)
Quarter: 2012Q1

REPORT INFORMATION
  Report Type: 
  Country: None (occurrence: None)
  Receive Date: 20120309
  Receipt Date: 20120229
  Transmission Date: 20120608
  Serious: Yes (Other)
  Sender: FDA-Public Use
  Company Number: GB-B.I. PHARMACEUTICALS,INC./RIDGEFIELD-2012-UK-00118UK

PATIENT
  Age: 62 Year
  Sex: Female
  Weight: 109 kg

DRUGS (8)
  1. GLICLAZIDE [Concomitant]
     Indication: DIABETES MELLITUS
     Dosage: 160 MG
     Dates: start: 20080101
  2. SIMVASTATIN [Concomitant]
     Dosage: 40 MG
     Dates: start: 20060101
  3. LOSARTAN POTASSIUM [Concomitant]
     Dosage: 25 MG
     Dates: start: 20111001
  4. SULPHONYL UREA [Concomitant]
  5. SYMBICORT [Concomitant]
     Indication: ASTHMA
     Dosage: 100/6 BD
     Dates: start: 20100101
  6. TRAJENTA [Suspect]
     Indication: DIABETES MELLITUS
     Dosage: 5 MG
     Route: 048
     Dates: start: 20111025, end: 20120202
  7. MONTELUKAST [Concomitant]
     Dosage: 10 MG
     Dates: start: 20110101
  8. ALBUTEROL [Concomitant]

REACTIONS (2)
  - GLYCOSYLATED HAEMOGLOBIN INCREASED [None]
  - GLOMERULAR FILTRATION RATE DECREASED [None]
